FAERS Safety Report 16302741 (Version 1)
Quarter: 2019Q2

REPORT INFORMATION
  Report Type: Other
  Country: DE (occurrence: DE)
  Receive Date: 20190513
  Receipt Date: 20190513
  Transmission Date: 20190711
  Serious: Yes (Hospitalization, Other)
  Sender: FDA-Public Use
  Company Number: DE-LUPIN PHARMACEUTICALS INC.-2019-02822

PATIENT
  Age: 4 Year
  Sex: Female
  Weight: 11 kg

DRUGS (5)
  1. TOPIRAMATE. [Suspect]
     Active Substance: TOPIRAMATE
     Indication: LENNOX-GASTAUT SYNDROME
     Dosage: 150 MILLIGRAM, QD
     Route: 048
  2. VALPROINSAEURE [Suspect]
     Active Substance: VALPROIC ACID
     Indication: LENNOX-GASTAUT SYNDROME
     Dosage: 900 MILLIGRAM, QD
     Route: 048
     Dates: start: 20170614, end: 20180903
  3. COLECALCIFEROL [Concomitant]
     Active Substance: CHOLECALCIFEROL
     Indication: PROPHYLAXIS
     Dosage: 1000 INTERNATIONAL UNIT, QD
     Route: 048
  4. LEVOCARNITIN [Concomitant]
     Indication: PRODUCT USED FOR UNKNOWN INDICATION
     Dosage: 2.4 MILLILITER, QD (1 G/ML)
     Route: 048
     Dates: end: 20180910
  5. LEVETIRACETAM. [Concomitant]
     Active Substance: LEVETIRACETAM
     Indication: LENNOX-GASTAUT SYNDROME
     Dosage: 750 MILLIGRAM, QD
     Route: 048

REACTIONS (4)
  - Hypothyroidism [Recovering/Resolving]
  - Weight decreased [Recovering/Resolving]
  - Seizure [Recovering/Resolving]
  - Hyperammonaemia [Recovering/Resolving]

NARRATIVE: CASE EVENT DATE: 20180903
